FAERS Safety Report 16536157 (Version 1)
Quarter: 2019Q3

REPORT INFORMATION
  Report Type: Spontaneous
  Country: ES (occurrence: ES)
  Receive Date: 20190705
  Receipt Date: 20190705
  Transmission Date: 20191004
  Serious: Yes (Life-Threatening, Other)
  Sender: FDA-Public Use
  Company Number: PHHY2019ES144975

PATIENT
  Age: 68 Year
  Sex: Female

DRUGS (2)
  1. MIDOSTAURIN [Suspect]
     Active Substance: MIDOSTAURIN
     Indication: MYELOID LEUKAEMIA
  2. MIDOSTAURIN [Suspect]
     Active Substance: MIDOSTAURIN
     Indication: ACUTE MYELOID LEUKAEMIA
     Dosage: 50 MG, Q12H
     Route: 048
     Dates: start: 20190523, end: 20190526

REACTIONS (1)
  - Acute myocardial infarction [Recovered/Resolved]

NARRATIVE: CASE EVENT DATE: 20190526
